FAERS Safety Report 9552030 (Version 1)
Quarter: 2013Q3

REPORT INFORMATION
  Report Type: Spontaneous
  Country: US (occurrence: None)
  Receive Date: 20130724
  Receipt Date: 20130724
  Transmission Date: 20140515
  Serious: Yes (Other)
  Sender: FDA-Public Use
  Company Number: PHEH2013US002596

PATIENT
  Age: 80 Year
  Sex: Male

DRUGS (8)
  1. GLEEVEC [Suspect]
     Indication: COLON CANCER
     Route: 048
  2. TENORMIN (ATENOLOL) [Concomitant]
  3. COZAAR (LOSARTAN POTASSIUM) (50 MILLIGRAM, TABLETS) (LOSARTAN POTASSIUM) [Concomitant]
  4. MINOXIDIL [Concomitant]
  5. PROTONIX (PANTOPRAZOLE SODIUM SESQUIHYDRATE) [Concomitant]
  6. OXYBUTYNIN [Concomitant]
  7. SIMVASTATIN [Concomitant]
  8. FLOMAX ^BOEHRINGER INGELHEIM^ (TAMSULOSIN HYDROCHLORIDE) [Concomitant]

REACTIONS (2)
  - Haematemesis [None]
  - Bowel movement irregularity [None]
